FAERS Safety Report 8872922 (Version 1)
Quarter: 2012Q4

REPORT INFORMATION
  Report Type: Report from Study
  Country: CA (occurrence: CA)
  Receive Date: 20121030
  Receipt Date: 20121030
  Transmission Date: 20130627
  Serious: Yes (Death)
  Sender: FDA-Public Use
  Company Number: CA-ROCHE-1149850

PATIENT
  Sex: Female

DRUGS (12)
  1. RITUXIMAB [Suspect]
     Indication: WEGENER^S GRANULOMATOSIS
     Route: 042
     Dates: start: 20100728, end: 20100826
  2. RITUXIMAB [Suspect]
     Indication: RHEUMATOID ARTHRITIS
  3. IMURAN [Concomitant]
  4. PREDNISONE [Concomitant]
  5. COZAAR [Concomitant]
  6. FUROSEMIDE [Concomitant]
  7. ADALAT [Concomitant]
  8. ACTONEL [Concomitant]
  9. TIAZAC [Concomitant]
  10. OXYCODONE [Concomitant]
     Route: 065
  11. SULFATRIM [Concomitant]
  12. ZOPICLONE [Concomitant]

REACTIONS (1)
  - Death [Fatal]
